FAERS Safety Report 6926096-0 (Version None)
Quarter: 2010Q3

REPORT INFORMATION
  Report Type: 
  Country: None (occurrence: None)
  Receive Date: 20100816
  Receipt Date: 20100804
  Transmission Date: 20110219
  Serious: Yes (Hospitalization, Other)
  Sender: FDA-Public Use
  Company Number: JP-PFIZER INC-2010097030

PATIENT
  Age: 86 Year
  Sex: Male

DRUGS (3)
  1. LYRICA [Suspect]
     Indication: POST HERPETIC NEURALGIA
     Dosage: 150 MG DAILY
     Route: 048
     Dates: start: 20100630
  2. LYRICA [Suspect]
     Dosage: 300 MG, DAILY
     Route: 048
  3. LIPITOR [Concomitant]
     Dosage: UNK
     Route: 048

REACTIONS (6)
  - BLOOD DISORDER [None]
  - HAEMATOCRIT DECREASED [None]
  - HAEMOGLOBIN DECREASED [None]
  - OEDEMA PERIPHERAL [None]
  - PLATELET COUNT DECREASED [None]
  - RENAL DISORDER [None]
